FAERS Safety Report 7433175-0 (Version None)
Quarter: 2011Q2

REPORT INFORMATION
  Report Type: 
  Country: None (occurrence: None)
  Receive Date: 20110415
  Receipt Date: 20110408
  Transmission Date: 20111010
  Serious: Yes (Hospitalization, Other)
  Sender: FDA-Public Use
  Company Number: GER/GER/11/0017965

PATIENT
  Sex: Female
  Weight: 75 kg

DRUGS (4)
  1. TRIMIPRAMINE MALEATE [Suspect]
     Indication: DEPRESSION
     Dosage: 100 MG, 1 IN 1 D, ORAL
     Route: 048
     Dates: start: 20091122, end: 20100315
  2. SEROQUEL [Suspect]
     Indication: DEPRESSION
     Dosage: 125 MG, 1 IN 1 D, ORAL
     Route: 048
     Dates: start: 20100126, end: 20100315
  3. VENLAFAXINE [Suspect]
     Indication: DEPRESSION
     Dosage: 150 MG, 1 IN 1 D, ORAL
     Route: 048
     Dates: start: 20091122, end: 20100315
  4. IMPFSTOFF GRIPPE (SAISONALE) (INFLUENZA VACCINE) [Concomitant]

REACTIONS (3)
  - DRUG EXPOSURE DURING PREGNANCY [None]
  - PREGNANCY [None]
  - ABORTION SPONTANEOUS [None]
